FAERS Safety Report 18062102 (Version 2)
Quarter: 2021Q2

REPORT INFORMATION
  Report Type: Spontaneous
  Country: CA (occurrence: CA)
  Receive Date: 20200723
  Receipt Date: 20210628
  Transmission Date: 20210717
  Serious: Yes (Life-Threatening, Hospitalization, Other)
  Sender: FDA-Public Use
  Company Number: CA-TEVA-2020-CA-1804195

PATIENT
  Age: 57 Year
  Sex: Male

DRUGS (38)
  1. SULFASALAZINE. [Suspect]
     Active Substance: SULFASALAZINE
     Indication: RHEUMATOID ARTHRITIS
     Route: 065
  2. ACTEMRA [Suspect]
     Active Substance: TOCILIZUMAB
     Indication: RHEUMATOID ARTHRITIS
     Route: 065
  3. HUMIRA [Suspect]
     Active Substance: ADALIMUMAB
     Indication: SYSTEMIC LUPUS ERYTHEMATOSUS
     Route: 058
  4. HYDROXYCHLOROQUINE SULFATE. [Suspect]
     Active Substance: HYDROXYCHLOROQUINE SULFATE
     Indication: SYSTEMIC LUPUS ERYTHEMATOSUS
     Route: 065
  5. ORENCIA [Suspect]
     Active Substance: ABATACEPT
     Indication: RHEUMATOID ARTHRITIS
     Route: 042
  6. REMICADE [Suspect]
     Active Substance: INFLIXIMAB
     Indication: RHEUMATOID ARTHRITIS
     Route: 065
  7. RITUXIMAB. [Suspect]
     Active Substance: RITUXIMAB
     Indication: RHEUMATOID ARTHRITIS
     Route: 065
  8. OXYCODONE [Suspect]
     Active Substance: OXYCODONE
     Indication: PAIN
     Route: 065
  9. LEFLUNOMIDE. [Suspect]
     Active Substance: LEFLUNOMIDE
     Indication: SYSTEMIC LUPUS ERYTHEMATOSUS
     Route: 065
  10. LEFLUNOMIDE. [Suspect]
     Active Substance: LEFLUNOMIDE
     Indication: RHEUMATOID ARTHRITIS
     Route: 048
  11. ANAKINRA [Suspect]
     Active Substance: ANAKINRA
     Indication: SYSTEMIC LUPUS ERYTHEMATOSUS
     Route: 065
  12. ANAKINRA [Suspect]
     Active Substance: ANAKINRA
     Indication: RHEUMATOID ARTHRITIS
     Route: 065
  13. HYDROXYCHLOROQUINE SULFATE. [Suspect]
     Active Substance: HYDROXYCHLOROQUINE SULFATE
     Indication: RHEUMATOID ARTHRITIS
     Route: 065
  14. RITUXIMAB. [Suspect]
     Active Substance: RITUXIMAB
     Indication: PRODUCT USED FOR UNKNOWN INDICATION
     Route: 065
  15. LEFLUNOMIDE. [Suspect]
     Active Substance: LEFLUNOMIDE
     Indication: SYSTEMIC LUPUS ERYTHEMATOSUS
     Route: 065
  16. LEFLUNOMIDE. [Suspect]
     Active Substance: LEFLUNOMIDE
     Route: 065
  17. ACTEMRA [Suspect]
     Active Substance: TOCILIZUMAB
     Indication: SYSTEMIC LUPUS ERYTHEMATOSUS
     Route: 065
  18. ENBREL [Suspect]
     Active Substance: ETANERCEPT
     Indication: SYSTEMIC LUPUS ERYTHEMATOSUS
     Route: 058
  19. SULFASALAZINE. [Suspect]
     Active Substance: SULFASALAZINE
     Indication: SYSTEMIC LUPUS ERYTHEMATOSUS
     Route: 065
  20. XELJANZ [Suspect]
     Active Substance: TOFACITINIB CITRATE
     Indication: PRODUCT USED FOR UNKNOWN INDICATION
     Dosage: 2 DOSAGE FORMS DAILY;
     Route: 048
  21. MINOCYCLINE HYDROCHLORIDE. [Suspect]
     Active Substance: MINOCYCLINE HYDROCHLORIDE
     Indication: PRODUCT USED FOR UNKNOWN INDICATION
     Route: 065
  22. METHOTREXATE. [Suspect]
     Active Substance: METHOTREXATE
     Indication: RHEUMATOID ARTHRITIS
     Route: 013
  23. ARAVA [Suspect]
     Active Substance: LEFLUNOMIDE
     Route: 065
  24. CANNABIS SATIVA [Suspect]
     Active Substance: CANNABIS SATIVA FLOWERING TOP
     Indication: PAIN
     Route: 065
  25. ENBREL [Suspect]
     Active Substance: ETANERCEPT
     Indication: RHEUMATOID ARTHRITIS
     Route: 065
  26. GOLD [Suspect]
     Active Substance: GOLD
     Indication: RHEUMATOID ARTHRITIS
     Route: 065
  27. ARAVA [Suspect]
     Active Substance: LEFLUNOMIDE
     Indication: RHEUMATOID ARTHRITIS
     Route: 065
  28. HUMIRA [Suspect]
     Active Substance: ADALIMUMAB
     Indication: RHEUMATOID ARTHRITIS
     Route: 065
  29. SODIUM AUROTHIOMALATE [Suspect]
     Active Substance: GOLD SODIUM THIOMALATE
     Indication: SYSTEMIC LUPUS ERYTHEMATOSUS
     Route: 065
  30. SODIUM AUROTHIOMALATE [Suspect]
     Active Substance: GOLD SODIUM THIOMALATE
     Indication: RHEUMATOID ARTHRITIS
     Route: 051
  31. LYRICA [Concomitant]
     Active Substance: PREGABALIN
     Indication: PRODUCT USED FOR UNKNOWN INDICATION
     Route: 065
  32. METHOTREXATE. [Suspect]
     Active Substance: METHOTREXATE
     Indication: SYSTEMIC LUPUS ERYTHEMATOSUS
     Route: 065
  33. ARAVA [Suspect]
     Active Substance: LEFLUNOMIDE
     Indication: SYSTEMIC LUPUS ERYTHEMATOSUS
     Route: 065
  34. ARAVA [Suspect]
     Active Substance: LEFLUNOMIDE
     Route: 065
  35. ILARIS [Suspect]
     Active Substance: CANAKINUMAB
     Indication: RHEUMATOID ARTHRITIS
     Route: 058
  36. ORENCIA [Suspect]
     Active Substance: ABATACEPT
     Indication: SYSTEMIC LUPUS ERYTHEMATOSUS
     Route: 065
  37. REMICADE [Suspect]
     Active Substance: INFLIXIMAB
     Indication: SYSTEMIC LUPUS ERYTHEMATOSUS
     Route: 042
  38. RITUXIMAB. [Suspect]
     Active Substance: RITUXIMAB
     Indication: SYSTEMIC LUPUS ERYTHEMATOSUS
     Route: 042

REACTIONS (27)
  - Haemoglobin decreased [Recovered/Resolved]
  - Joint swelling [Recovered/Resolved]
  - Thrombosis [Recovered/Resolved]
  - Urticaria [Recovered/Resolved]
  - Deep vein thrombosis [Recovered/Resolved]
  - Pulmonary embolism [Recovered/Resolved]
  - Red blood cell sedimentation rate increased [Recovered/Resolved]
  - Renal failure [Recovered/Resolved]
  - Feeling abnormal [Recovered/Resolved]
  - Diverticulitis [Recovered/Resolved]
  - Interstitial lung disease [Recovered/Resolved]
  - Myocardial infarction [Recovered/Resolved]
  - C-reactive protein abnormal [Recovered/Resolved]
  - Pain [Recovered/Resolved]
  - Pulmonary thrombosis [Recovered/Resolved]
  - Stomatitis [Recovered/Resolved]
  - Intentional product use issue [Recovered/Resolved]
  - Herpes zoster [Recovered/Resolved]
  - Off label use [Recovered/Resolved]
  - Arthropathy [Recovered/Resolved]
  - Photosensitivity reaction [Recovered/Resolved]
  - Sepsis [Recovered/Resolved]
  - Drug intolerance [Recovered/Resolved]
  - Drug ineffective [Recovered/Resolved]
  - Terminal state [Recovered/Resolved]
  - Apparent death [Recovered/Resolved]
  - Drug hypersensitivity [Recovered/Resolved]
